FAERS Safety Report 9940818 (Version 2)
Quarter: 2014Q1

REPORT INFORMATION
  Report Type: Spontaneous
  Country: US (occurrence: US)
  Receive Date: 20140303
  Receipt Date: 20140303
  Transmission Date: 20141002
  Serious: No
  Sender: FDA-Public Use
  Company Number: US-MYLANLABS-2014S1000968

PATIENT
  Age: 56 Year
  Sex: Female

DRUGS (1)
  1. MONTELUKAST SODIUM TABLETS [Suspect]
     Indication: ALLERGY PROPHYLAXIS
     Route: 048
     Dates: start: 20140113, end: 20140113

REACTIONS (2)
  - Somnolence [Recovered/Resolved]
  - Drug administration error [Recovered/Resolved]
